FAERS Safety Report 23406531 (Version 1)
Quarter: 2024Q1

REPORT INFORMATION
  Report Type: Spontaneous
  Country: BE (occurrence: BE)
  Receive Date: 20240116
  Receipt Date: 20240116
  Transmission Date: 20240410
  Serious: Yes (Life-Threatening)
  Sender: FDA-Public Use
  Company Number: None

PATIENT
  Sex: Male
  Weight: 80 kg

DRUGS (5)
  1. PROPOFOL [Suspect]
     Active Substance: PROPOFOL
     Indication: Product used for unknown indication
     Dosage: 160MG BOLUS
     Route: 042
     Dates: start: 20231207
  2. ROCURONIUM [Suspect]
     Active Substance: ROCURONIUM BROMIDE
     Indication: Product used for unknown indication
     Dosage: 60 MG BOLUS
     Route: 042
     Dates: start: 20231207
  3. LIDOCAINE [Suspect]
     Active Substance: LIDOCAINE
     Indication: Product used for unknown indication
     Dosage: 80MG BOLUS?ROUTE OF ADMIN: INTRAVENOUS
     Route: 040
     Dates: start: 20231207
  4. CHLORHEXIDINE [Suspect]
     Active Substance: CHLORHEXIDINE\CHLORHEXIDINE GLUCONATE
     Indication: Product used for unknown indication
     Dosage: CUTANEOUS DESINFECTION
     Route: 003
     Dates: start: 20231207
  5. SUFENTANIL [Suspect]
     Active Substance: SUFENTANIL
     Indication: Product used for unknown indication
     Route: 040
     Dates: start: 20231207

REACTIONS (8)
  - Erythema [Unknown]
  - Swelling of eyelid [Unknown]
  - Swollen tongue [Unknown]
  - Urticaria [Unknown]
  - Dyspnoea [Unknown]
  - Hypotension [Unknown]
  - Erythema [Unknown]
  - Erythema [Unknown]

NARRATIVE: CASE EVENT DATE: 20231207
